FAERS Safety Report 9539089 (Version 1)
Quarter: 2013Q2

REPORT INFORMATION
  Report Type: Spontaneous
  Country: US (occurrence: None)
  Receive Date: 20130507
  Receipt Date: 20130507
  Transmission Date: 20140414
  Serious: No
  Sender: FDA-Public Use
  Company Number: PHEH2013US004910

PATIENT
  Sex: Female
  Weight: 76.2 kg

DRUGS (4)
  1. AFINITOR [Suspect]
     Route: 048
  2. AROMASIN (EXEMESTANE) TABLET [Concomitant]
  3. ATIVAN (LORAZEPAM) TABLET [Concomitant]
  4. PRILOSEC [Concomitant]

REACTIONS (3)
  - Muscle spasms [None]
  - Oral pain [None]
  - Fatigue [None]
